FAERS Safety Report 19158841 (Version 1)
Quarter: 2021Q2

REPORT INFORMATION
  Report Type: Spontaneous
  Country: US (occurrence: US)
  Receive Date: 20210420
  Receipt Date: 20210420
  Transmission Date: 20210717
  Serious: No
  Sender: FDA-Public Use
  Company Number: US-SA-2021SA128430

PATIENT
  Sex: Female

DRUGS (2)
  1. AUBAGIO [Suspect]
     Active Substance: TERIFLUNOMIDE
     Indication: MULTIPLE SCLEROSIS
     Dosage: UNK
     Route: 048
     Dates: start: 20180417
  2. MODERNA COVID?19 VACCINE [Suspect]
     Active Substance: CX-024414

REACTIONS (3)
  - Pain in extremity [Unknown]
  - Fatigue [Recovered/Resolved]
  - Pain [Unknown]
